FAERS Safety Report 24868167 (Version 1)
Quarter: 2025Q1

REPORT INFORMATION
  Report Type: Report from Study
  Country: CO (occurrence: CO)
  Receive Date: 20250121
  Receipt Date: 20250121
  Transmission Date: 20250409
  Serious: Yes (Death)
  Sender: BAYER HEALTHCARE PHARMACEUTICALS INC.
  Company Number: CO-BAYER-2025A009214

PATIENT
  Age: 35 Year
  Sex: Female

DRUGS (1)
  1. ADEMPAS [Suspect]
     Active Substance: RIOCIGUAT
     Indication: Pulmonary hypertension
     Dosage: 2 MG, Q8HR
     Route: 048
     Dates: start: 20221222, end: 20240828

REACTIONS (1)
  - Death [Fatal]

NARRATIVE: CASE EVENT DATE: 20240828
